FAERS Safety Report 9900251 (Version 1)
Quarter: 2014Q1

REPORT INFORMATION
  Report Type: Spontaneous
  Country: IT (occurrence: IT)
  Receive Date: 20140215
  Receipt Date: 20140215
  Transmission Date: 20141002
  Serious: Yes (Hospitalization)
  Sender: FDA-Public Use
  Company Number: IT-ACCORD-021863

PATIENT
  Age: 71 Year
  Sex: Female

DRUGS (6)
  1. ONDANSETRON [Concomitant]
  2. DEXAMETHASONE [Concomitant]
  3. LEDERFOLIN [Concomitant]
  4. IRINOTECAN [Suspect]
     Indication: COLON CANCER
     Route: 042
     Dates: start: 20131231, end: 20131231
  5. AVASTIN [Suspect]
     Indication: COLON CANCER
     Route: 042
     Dates: start: 20131231, end: 20131231
  6. FLUOROURACIL [Suspect]
     Indication: COLON CANCER
     Dosage: 262 MG VIA BOLUS,?1572 MG VIA INFUSION
     Route: 042
     Dates: start: 20131231, end: 20131231

REACTIONS (1)
  - Small intestinal perforation [Recovered/Resolved]
